FAERS Safety Report 10245739 (Version 1)
Quarter: 2014Q2

REPORT INFORMATION
  Report Type: Spontaneous
  Country: US (occurrence: US)
  Receive Date: 20140619
  Receipt Date: 20140619
  Transmission Date: 20141212
  Serious: Yes (Other)
  Sender: FDA-Public Use
  Company Number: US-PFIZER INC-2014164317

PATIENT
  Age: 77 Year
  Sex: Male
  Weight: 83 kg

DRUGS (4)
  1. TIKOSYN [Suspect]
     Indication: ARRHYTHMIA
     Dosage: 500 UG, 2X/DAY
     Route: 048
     Dates: start: 20140611
  2. COUMADINE [Concomitant]
     Dosage: UNK
  3. LISINOPRIL [Concomitant]
     Dosage: UNK
     Dates: start: 20140612
  4. LIPITOR [Concomitant]
     Dosage: 40 MG, UNK

REACTIONS (2)
  - Cardiac disorder [Unknown]
  - Sedation [Unknown]
